FAERS Safety Report 5926609-1 (Version None)
Quarter: 2008Q4

REPORT INFORMATION
  Report Type: 
  Country: None (occurrence: None)
  Receive Date: 20081022
  Receipt Date: 20081020
  Transmission Date: 20090506
  Serious: Yes (Death)
  Sender: FDA-Public Use
  Company Number: A0753085A

PATIENT
  Age: 69 Year
  Sex: Female
  Weight: 92 kg

DRUGS (1)
  1. SERETIDE [Suspect]
     Indication: ASTHMA
     Route: 055
     Dates: start: 19980101, end: 20080804

REACTIONS (1)
  - LUNG NEOPLASM MALIGNANT [None]
